FAERS Safety Report 22399419 (Version 1)
Quarter: 2023Q2

REPORT INFORMATION
  Report Type: Spontaneous
  Country: US (occurrence: US)
  Receive Date: 20230602
  Receipt Date: 20230602
  Transmission Date: 20230721
  Serious: No
  Sender: FDA-Public Use
  Company Number: US-009507513-2306USA000571

PATIENT
  Age: 51 Year
  Sex: Female

DRUGS (15)
  1. CUBICIN [Suspect]
     Active Substance: DAPTOMYCIN
     Indication: Enterococcal bacteraemia
     Dosage: UNK
  2. CUBICIN [Suspect]
     Active Substance: DAPTOMYCIN
     Indication: Peritonitis
  3. CUBICIN [Suspect]
     Active Substance: DAPTOMYCIN
     Indication: Enterococcal infection
  4. AMIKACIN [Concomitant]
     Active Substance: AMIKACIN
     Indication: Peritonitis
     Dosage: UNK
  5. AMIKACIN [Concomitant]
     Active Substance: AMIKACIN
     Indication: Enterococcal bacteraemia
  6. AMIKACIN [Concomitant]
     Active Substance: AMIKACIN
     Indication: Enterococcal infection
  7. ANIDULAFUNGIN [Concomitant]
     Active Substance: ANIDULAFUNGIN
     Indication: Peritonitis
     Dosage: UNK
  8. ANIDULAFUNGIN [Concomitant]
     Active Substance: ANIDULAFUNGIN
     Indication: Enterococcal bacteraemia
  9. ANIDULAFUNGIN [Concomitant]
     Active Substance: ANIDULAFUNGIN
     Indication: Enterococcal infection
  10. VALGANCICLOVIR [Concomitant]
     Active Substance: VALGANCICLOVIR
     Indication: Peritonitis
     Dosage: UNK
  11. VALGANCICLOVIR [Concomitant]
     Active Substance: VALGANCICLOVIR
     Indication: Enterococcal bacteraemia
  12. VALGANCICLOVIR [Concomitant]
     Active Substance: VALGANCICLOVIR
     Indication: Enterococcal infection
  13. MINOCYCLINE [Concomitant]
     Active Substance: MINOCYCLINE HYDROCHLORIDE
     Indication: Peritonitis
     Dosage: UNK
  14. MINOCYCLINE [Concomitant]
     Active Substance: MINOCYCLINE HYDROCHLORIDE
     Indication: Enterococcal bacteraemia
  15. MINOCYCLINE [Concomitant]
     Active Substance: MINOCYCLINE HYDROCHLORIDE
     Indication: Enterococcal infection

REACTIONS (1)
  - Product use in unapproved indication [Unknown]
